FAERS Safety Report 4868161-8 (Version None)
Quarter: 2005Q4

REPORT INFORMATION
  Report Type: 
  Country: None (occurrence: None)
  Receive Date: 20051223
  Receipt Date: 20051214
  Transmission Date: 20060501
  Serious: Yes (Death)
  Sender: FDA-Public Use
  Company Number: 2005S1009916

PATIENT
  Age: 47 Year
  Sex: Male
  Weight: 129.2752 kg

DRUGS (12)
  1. CLOZAPINE [Suspect]
     Indication: SCHIZOPHRENIA, PARANOID TYPE
     Dosage: 50 MG; BID; ORAL
     Route: 048
     Dates: start: 20050923, end: 20050930
  2. OLANZAPINE [Concomitant]
  3. LORAZEPAM [Concomitant]
  4. VALPROATE SODIUM [Concomitant]
  5. CLONAZEPAM [Concomitant]
  6. LEVOFLOXACIN [Concomitant]
  7. METFORMIN HYDROCHLORIDE [Concomitant]
  8. ROSIGLITAZONE MALEATE [Concomitant]
  9. SIMVASTATIN [Concomitant]
  10. ASPIRIN [Concomitant]
  11. VITAMINS NOS [Concomitant]
  12. ENALAPRIL [Concomitant]

REACTIONS (8)
  - AGGRESSION [None]
  - ARTERIOSCLEROSIS CORONARY ARTERY [None]
  - CARDIO-RESPIRATORY ARREST [None]
  - FALL [None]
  - PULMONARY EMBOLISM [None]
  - REFUSAL OF TREATMENT BY PATIENT [None]
  - TREATMENT NONCOMPLIANCE [None]
  - VENOUS STASIS [None]
